FAERS Safety Report 13915462 (Version 2)
Quarter: 2017Q3

REPORT INFORMATION
  Report Type: Spontaneous
  Country: US (occurrence: US)
  Receive Date: 20170829
  Receipt Date: 20170922
  Transmission Date: 20171127
  Serious: Yes (Hospitalization, Other)
  Sender: FDA-Public Use
  Company Number: US-009507513-1708USA009745

PATIENT
  Sex: Female

DRUGS (1)
  1. FUROSEMIDE. [Suspect]
     Active Substance: FUROSEMIDE
     Route: 048

REACTIONS (10)
  - Amnesia [Not Recovered/Not Resolved]
  - Cardiac disorder [Unknown]
  - Fluid retention [Unknown]
  - Head banging [Unknown]
  - Hallucination [Not Recovered/Not Resolved]
  - Pneumonia [Recovered/Resolved]
  - Infection [Unknown]
  - Dementia Alzheimer^s type [Not Recovered/Not Resolved]
  - Muscular weakness [Unknown]
  - Gait disturbance [Not Recovered/Not Resolved]
